FAERS Safety Report 4980197-5 (Version None)
Quarter: 2006Q2

REPORT INFORMATION
  Report Type: 
  Country: None (occurrence: None)
  Receive Date: 20060424
  Receipt Date: 20031016
  Transmission Date: 20061013
  Serious: Yes (Hospitalization)
  Sender: FDA-Public Use
  Company Number: JP-NOVOPROD-233455

PATIENT
  Age: 29 Year
  Sex: Female

DRUGS (8)
  1. NOVORAPID CHU FLEXPEN [Suspect]
     Indication: DIABETES MELLITUS INSULIN-DEPENDENT
     Dosage: 4 + 4 + 4 IU QD
     Route: 058
     Dates: start: 20030924, end: 20031014
  2. NOVORAPID CHU FLEXPEN [Suspect]
     Dosage: 6 + 6 + 6 IU QD
  3. NOVOLIN N [Suspect]
     Indication: DIABETES MELLITUS INSULIN-DEPENDENT
     Dosage: 4 IU, QD
     Route: 058
     Dates: start: 20030924, end: 20031014
  4. NOVOLIN N [Suspect]
     Dosage: 6 IU, QD
  5. HUMULIN 70/30 [Concomitant]
     Indication: DIABETES MELLITUS INSULIN-DEPENDENT
     Dosage: UNK, UNK
     Route: 042
     Dates: start: 20031014, end: 20031029
  6. HUMULIN 70/30 [Concomitant]
     Dosage: 4 + 4 + 4 IU, QD
     Dates: start: 20031023, end: 20031029
  7. HUMULIN 70/30 [Concomitant]
     Dates: start: 20031030
  8. NOVOLIN R [Concomitant]
     Indication: DIABETES MELLITUS INSULIN-DEPENDENT
     Dates: start: 20031029, end: 20031030

REACTIONS (6)
  - ACNE [None]
  - CHOLECYSTITIS ACUTE [None]
  - DIABETIC KETOACIDOSIS [None]
  - ERYTHEMA [None]
  - HEPATIC FUNCTION ABNORMAL [None]
  - OEDEMA PERIPHERAL [None]
